FAERS Safety Report 11861916 (Version 2)
Quarter: 2017Q3

REPORT INFORMATION
  Report Type: Spontaneous
  Country: US (occurrence: US)
  Receive Date: 20151222
  Receipt Date: 20170928
  Transmission Date: 20171127
  Serious: No
  Sender: FDA-Public Use
  Company Number: US-ROCHE-646207

PATIENT
  Sex: Female

DRUGS (3)
  1. PEGASYS [Suspect]
     Active Substance: PEGINTERFERON ALFA-2A
     Indication: HEPATITIS C
     Dosage: FORM: PRE-FILLED SYRINGE.
     Route: 058
  2. COPEGUS [Suspect]
     Active Substance: RIBAVIRIN
     Indication: HEPATITIS C
     Dosage: HAD REFRIGERATED RIBAVIRIN. MEDICATION ERROR.
     Route: 048
     Dates: start: 20090720, end: 20090725
  3. COPEGUS [Suspect]
     Active Substance: RIBAVIRIN
     Dosage: DIVIDED DOSES.
     Route: 048

REACTIONS (6)
  - Poor quality drug administered [Unknown]
  - Capillary disorder [Unknown]
  - Fatigue [Unknown]
  - Influenza like illness [Unknown]
  - Retinal exudates [Unknown]
  - Visual impairment [Unknown]
